FAERS Safety Report 15765243 (Version 2)
Quarter: 2019Q1

REPORT INFORMATION
  Report Type: Report from Study
  Country: EG (occurrence: EG)
  Receive Date: 20181227
  Receipt Date: 20190103
  Transmission Date: 20190417
  Serious: Yes (Hospitalization, Other)
  Sender: FDA-Public Use
  Company Number: EG-SA-2018SA389516

PATIENT
  Age: 14 Year
  Sex: Female

DRUGS (4)
  1. INSULIN GLARGINE [Suspect]
     Active Substance: INSULIN GLARGINE
     Indication: TYPE 1 DIABETES MELLITUS
     Dosage: 20 IU, QD
     Route: 058
     Dates: start: 201108
  2. APIDRA [Concomitant]
     Active Substance: INSULIN GLULISINE
     Dosage: (10-15-10 IU)
     Route: 065
  3. APIDRA [Concomitant]
     Active Substance: INSULIN GLULISINE
     Dosage: (8-2-8) I.U
     Route: 065
  4. ELTROXIN [Concomitant]
     Active Substance: LEVOTHYROXINE
     Dosage: UNK UNK, UNK
     Route: 065

REACTIONS (5)
  - Hyperthyroidism [Not Recovered/Not Resolved]
  - Product dose omission [Unknown]
  - Diabetic ketoacidosis [Recovered/Resolved]
  - Coeliac disease [Not Recovered/Not Resolved]
  - Expired device used [Unknown]

NARRATIVE: CASE EVENT DATE: 2016
